FAERS Safety Report 11683115 (Version 8)
Quarter: 2016Q4

REPORT INFORMATION
  Report Type: Report from Study
  Country: CO (occurrence: CO)
  Receive Date: 20151029
  Receipt Date: 20161111
  Transmission Date: 20170206
  Serious: Yes (Death, Hospitalization, Other)
  Sender: FDA-Public Use
  Company Number: PHHY2015CO128512

PATIENT
  Age: 33 Year
  Sex: Male
  Weight: 82 kg

DRUGS (8)
  1. REVOLADE [Suspect]
     Active Substance: ELTROMBOPAG
     Dosage: 50 MG, BID
     Route: 048
     Dates: start: 20150604
  2. REVOLADE [Suspect]
     Active Substance: ELTROMBOPAG
     Indication: APLASTIC ANAEMIA
     Dosage: 75 MG, QD
     Route: 048
     Dates: start: 201506
  3. REVOLADE [Suspect]
     Active Substance: ELTROMBOPAG
     Dosage: 100 MG, QD (DAILY TWO TABLETS OF 50 MG)
     Route: 048
  4. TRIMETHOPRIM. [Concomitant]
     Active Substance: TRIMETHOPRIM
     Indication: PRODUCT USED FOR UNKNOWN INDICATION
     Dosage: 200 MG, BID
     Route: 048
  5. REVOLADE [Suspect]
     Active Substance: ELTROMBOPAG
     Indication: IMMUNE THROMBOCYTOPENIC PURPURA
     Dosage: 25 MG, QD
     Route: 048
  6. CYCLOSPORINE. [Concomitant]
     Active Substance: CYCLOSPORINE
     Indication: RENAL TRANSPLANT
     Dosage: 300 MG, QD
     Route: 048
     Dates: start: 201506
  7. REVOLADE [Suspect]
     Active Substance: ELTROMBOPAG
     Dosage: DOSE REDUCED TO UNKNOW DOSE
     Route: 048
     Dates: start: 201509
  8. ACICLOVIR [Concomitant]
     Active Substance: ACYCLOVIR
     Indication: PRODUCT USED FOR UNKNOWN INDICATION
     Dosage: 800 MG, QD
     Route: 048
     Dates: start: 201506

REACTIONS (20)
  - Dizziness [Unknown]
  - Haemoglobin decreased [Unknown]
  - General physical health deterioration [Fatal]
  - Rash [Recovered/Resolved]
  - Oropharyngeal pain [Unknown]
  - Epistaxis [Unknown]
  - Asthenia [Unknown]
  - Asphyxia [Unknown]
  - Platelet count decreased [Unknown]
  - Bacterial infection [Unknown]
  - Transplant failure [Unknown]
  - Appendicitis [Unknown]
  - Malaise [Unknown]
  - Vomiting [Unknown]
  - Decreased immune responsiveness [Unknown]
  - Haemorrhage [Unknown]
  - Dyspnoea [Unknown]
  - Epistaxis [Recovered/Resolved]
  - Disease recurrence [Unknown]
  - Incorrect dosage administered [Unknown]

NARRATIVE: CASE EVENT DATE: 20150604
